FAERS Safety Report 8990264 (Version 2)
Quarter: 2013Q1

REPORT INFORMATION
  Report Type: Report from Study
  Country: JP (occurrence: JP)
  Receive Date: 20121228
  Receipt Date: 20130306
  Transmission Date: 20140127
  Serious: Yes (Death)
  Sender: FDA-Public Use
  Company Number: JP-AMGEN-JPNCT2010011957

PATIENT
  Age: 58 Year
  Sex: Male
  Weight: 54 kg

DRUGS (17)
  1. PANITUMUMAB [Suspect]
     Indication: COLORECTAL CANCER
     Dosage: 6 MG/KG, Q2WK
     Route: 041
     Dates: start: 20100820, end: 20101124
  2. CORTICOSTEROIDS [Concomitant]
     Indication: PROPHYLAXIS
     Dosage: UNK
     Route: 065
  3. HIRUDOID [Concomitant]
     Dosage: UNK
     Route: 062
  4. LOCOID [Concomitant]
     Dosage: UNK
     Route: 062
  5. MYSER [Concomitant]
     Dosage: UNK
     Route: 062
  6. MINOMYCIN [Concomitant]
     Dosage: UNK
     Route: 048
  7. HYPEN [Concomitant]
     Dosage: UNK
     Route: 048
  8. MUCOSTA [Concomitant]
     Dosage: UNK
     Route: 048
  9. MAGNESIUM OXIDE [Concomitant]
     Dosage: UNK
     Route: 048
  10. PURSENNID [Concomitant]
     Dosage: UNK
     Route: 048
  11. ZINC OXIDE [Concomitant]
     Dosage: UNK
     Route: 062
  12. DRENISON [Concomitant]
     Dosage: UNK
     Route: 062
  13. FUROSEMIDE [Concomitant]
     Dosage: UNK
     Route: 048
  14. ALDACTONE-A [Concomitant]
     Dosage: UNK
     Route: 048
  15. LENDORMIN [Concomitant]
     Dosage: UNK
     Route: 048
  16. ENTERONON-R [Concomitant]
     Dosage: UNK
     Route: 048
  17. CRAVIT [Concomitant]
     Route: 048

REACTIONS (5)
  - Hyperkalaemia [Fatal]
  - Colorectal cancer [Fatal]
  - Dermatitis acneiform [Not Recovered/Not Resolved]
  - Dry skin [Not Recovered/Not Resolved]
  - Paronychia [Not Recovered/Not Resolved]
